FAERS Safety Report 17297969 (Version 1)
Quarter: 2020Q1

REPORT INFORMATION
  Report Type: Spontaneous
  Country: FR (occurrence: FR)
  Receive Date: 20200122
  Receipt Date: 20200122
  Transmission Date: 20200409
  Serious: Yes (Other)
  Sender: FDA-Public Use
  Company Number: FR-ROCHE-2529670

PATIENT
  Age: 87 Year
  Sex: Female
  Weight: 60 kg

DRUGS (9)
  1. AMLOR [Concomitant]
     Active Substance: AMLODIPINE BESYLATE
  2. SIFROL [Concomitant]
     Active Substance: PRAMIPEXOLE
  3. ACTILYSE [Suspect]
     Active Substance: ALTEPLASE
     Indication: THROMBOLYSIS
     Route: 042
     Dates: start: 20191220, end: 20191220
  4. PROTHIADEN [Concomitant]
     Active Substance: DOTHIEPIN HYDROCHLORIDE
  5. DOGMATIL [Concomitant]
     Active Substance: SULPIRIDE
  6. PERINDOPRIL [Interacting]
     Active Substance: PERINDOPRIL
     Indication: HYPERTENSION
     Route: 048
     Dates: start: 20191220
  7. KREDEX [Concomitant]
     Active Substance: CARVEDILOL
  8. CHONDROSULF [Concomitant]
     Active Substance: CHONDROITIN SULFATE (CHICKEN)
  9. KARDEGIC [Concomitant]
     Active Substance: ASPIRIN DL-LYSINE

REACTIONS (2)
  - Angioedema [Recovered/Resolved]
  - Drug interaction [Recovered/Resolved]

NARRATIVE: CASE EVENT DATE: 20191220
